FAERS Safety Report 9475566 (Version 1)
Quarter: 2013Q3

REPORT INFORMATION
  Report Type: Report from Study
  Country: DE (occurrence: DE)
  Receive Date: 20130826
  Receipt Date: 20130826
  Transmission Date: 20140515
  Serious: Yes (Life-Threatening, Hospitalization)
  Sender: FDA-Public Use
  Company Number: DE-ROCHE-1265934

PATIENT
  Sex: Female

DRUGS (6)
  1. RITUXIMAB [Suspect]
     Indication: RHEUMATOID ARTHRITIS
     Route: 065
     Dates: start: 20070612, end: 20110705
  2. RITUXIMAB [Suspect]
     Route: 065
     Dates: start: 20120110
  3. RITUXIMAB [Suspect]
     Route: 065
     Dates: start: 20130117
  4. ETANERCEPT [Concomitant]
     Indication: RHEUMATOID ARTHRITIS
     Route: 065
     Dates: start: 200707, end: 201110
  5. LEFLUNOMID [Concomitant]
     Indication: RHEUMATOID ARTHRITIS
     Dosage: 10 MG AND 20 MG GIVEN
     Route: 065
  6. METHOTREXATE [Concomitant]
     Indication: RHEUMATOID ARTHRITIS
     Dosage: 7.5 MG AND 10 MG GIVEN
     Route: 065

REACTIONS (1)
  - Mechanical ileus [Unknown]
